FAERS Safety Report 16924860 (Version 2)
Quarter: 2019Q4

REPORT INFORMATION
  Report Type: Report from Study
  Country: FR (occurrence: FR)
  Receive Date: 20191016
  Receipt Date: 20191119
  Transmission Date: 20200122
  Serious: Yes (Death, Life-Threatening, Hospitalization)
  Sender: FDA-Public Use
  Company Number: FR-AMGEN-FRASP2019165643

PATIENT
  Age: 8 Year
  Sex: Male
  Weight: 14.5 kg

DRUGS (1)
  1. CINACALCET HCL [Suspect]
     Active Substance: CINACALCET HYDROCHLORIDE
     Indication: HYPERPARATHYROIDISM SECONDARY
     Dosage: UNK
     Route: 065
     Dates: start: 20190923

REACTIONS (4)
  - Hypercalcaemia [Unknown]
  - Hypocalciuria [Unknown]
  - Blood parathyroid hormone abnormal [Unknown]
  - Death [Fatal]
